FAERS Safety Report 6166546-3 (Version None)
Quarter: 2009Q2

REPORT INFORMATION
  Report Type: 
  Country: None (occurrence: None)
  Receive Date: 20090424
  Receipt Date: 20090413
  Transmission Date: 20091009
  Serious: Yes (Death)
  Sender: FDA-Public Use
  Company Number: RS-ROCHE-627054

PATIENT

DRUGS (1)
  1. MYCOPHENOLATE MOFETIL [Suspect]
     Indication: GLOMERULONEPHRITIS
     Route: 065

REACTIONS (1)
  - CEREBROVASCULAR ACCIDENT [None]
